FAERS Safety Report 14089461 (Version 1)
Quarter: 2017Q4

REPORT INFORMATION
  Report Type: Spontaneous
  Country: NO (occurrence: NO)
  Receive Date: 20171013
  Receipt Date: 20171013
  Transmission Date: 20180321
  Serious: Yes (Hospitalization, Disabling, Other)
  Sender: FDA-Public Use
  Company Number: NO-ABBVIE-17P-122-2131424-00

PATIENT
  Sex: Female

DRUGS (2)
  1. BUDESONIDE. [Concomitant]
     Active Substance: BUDESONIDE
     Indication: CROHN^S DISEASE
     Route: 048
  2. HUMIRA [Suspect]
     Active Substance: ADALIMUMAB
     Indication: CROHN^S DISEASE
     Route: 058
     Dates: start: 201608, end: 20170718

REACTIONS (4)
  - Catheter site hypoaesthesia [Unknown]
  - Sensory disturbance [Unknown]
  - Abdominal hernia [Unknown]
  - Myelopathy [Recovering/Resolving]

NARRATIVE: CASE EVENT DATE: 2017
